FAERS Safety Report 22361906 (Version 1)
Quarter: 2023Q2

REPORT INFORMATION
  Report Type: Spontaneous
  Country: US (occurrence: None)
  Receive Date: 20230524
  Receipt Date: 20230524
  Transmission Date: 20230722
  Serious: Yes (Death)
  Sender: FDA-Public Use
  Company Number: None

PATIENT
  Age: 83 Year
  Sex: Male
  Weight: 63.5 kg

DRUGS (28)
  1. ERLEADA [Suspect]
     Active Substance: APALUTAMIDE
     Indication: Prostate cancer
     Dosage: FREQUENCY : DAILY;?
     Route: 048
  2. ASPIRIN [Concomitant]
     Active Substance: ASPIRIN
  3. ATORVASTATIN [Concomitant]
     Active Substance: ATORVASTATIN
  4. CALCIUM [Concomitant]
     Active Substance: CALCIUM
  5. DULOCLAX [Concomitant]
  6. GABAPENTIN [Concomitant]
     Active Substance: GABAPENTIN
  7. IRON [Concomitant]
     Active Substance: IRON
  8. ISOSORBIDE [Concomitant]
     Active Substance: ISOSORBIDE
  9. LACTOBACILLUS ACIDOPHILUS [Concomitant]
     Active Substance: LACTOBACILLUS ACIDOPHILUS
  10. LIDOCAINE PATCH [Concomitant]
     Active Substance: LIDOCAINE
  11. LOVENOX [Concomitant]
     Active Substance: ENOXAPARIN SODIUM
  12. MAGOX [Concomitant]
  13. METFORMIN [Concomitant]
     Active Substance: METFORMIN HYDROCHLORIDE
  14. METOPROLOL [Concomitant]
     Active Substance: METOPROLOL
  15. MIRTAZAPINE [Concomitant]
     Active Substance: MIRTAZAPINE
  16. VITAMINS [Concomitant]
     Active Substance: VITAMINS
  17. NITROGLYCERIN [Concomitant]
     Active Substance: NITROGLYCERIN
  18. NORCO [Concomitant]
     Active Substance: ACETAMINOPHEN\HYDROCODONE BITARTRATE
  19. OMEGA-3 ACIDS [Concomitant]
     Active Substance: OMEGA-3 FATTY ACIDS
  20. TRAMADOL [Concomitant]
     Active Substance: TRAMADOL
  21. TYLENOL [Concomitant]
     Active Substance: ACETAMINOPHEN
  22. VANCOMYCIN [Concomitant]
     Active Substance: VANCOMYCIN
  23. VIT A [Concomitant]
  24. VITAMIN C [Concomitant]
     Active Substance: ASCORBIC ACID
  25. VITAMIN D3 [Concomitant]
     Active Substance: CHOLECALCIFEROL
  26. ZINC [Concomitant]
     Active Substance: ZINC
  27. ZOFRAN [Concomitant]
     Active Substance: ONDANSETRON HYDROCHLORIDE
  28. ZOSYN [Concomitant]
     Active Substance: PIPERACILLIN SODIUM\TAZOBACTAM SODIUM

REACTIONS (1)
  - Death [None]
